FAERS Safety Report 7055145-7 (Version None)
Quarter: 2010Q4

REPORT INFORMATION
  Report Type: 
  Country: None (occurrence: None)
  Receive Date: 20101021
  Receipt Date: 20101006
  Transmission Date: 20110411
  Serious: Yes (Hospitalization, Other)
  Sender: FDA-Public Use
  Company Number: PHHY2010GB66787

PATIENT
  Age: 32 Year
  Sex: Female

DRUGS (1)
  1. CALCITONIN-SALMON [Suspect]
     Dosage: 100 UNITS DAILY
     Route: 058

REACTIONS (5)
  - BONE FORMATION INCREASED [None]
  - BONE LESION [None]
  - JOINT SWELLING [None]
  - OSTEOSCLEROSIS [None]
  - SURGERY [None]
